FAERS Safety Report 6573303-2 (Version None)
Quarter: 2010Q1

REPORT INFORMATION
  Report Type: 
  Country: None (occurrence: None)
  Receive Date: 20100208
  Receipt Date: 20100127
  Transmission Date: 20100710
  Serious: Yes (Death)
  Sender: FDA-Public Use
  Company Number: US-PFIZER INC-2010001818

PATIENT
  Sex: Male
  Weight: 77.551 kg

DRUGS (14)
  1. CP-751,871 [Suspect]
     Indication: PROSTATE CANCER
     Dosage: 10 MG, CYCLIC, EVERY 3 WEEKS
     Route: 042
     Dates: start: 20091111, end: 20091202
  2. SUNITINIB MALATE [Suspect]
     Indication: PROSTATE CANCER
     Dosage: 25 MG, 1X/DAY, CONTINUOUS DAILY DOSING
     Route: 048
     Dates: start: 20091111, end: 20091219
  3. AMLODIPINE [Concomitant]
     Indication: HYPERTENSION
     Dosage: UNK
     Dates: start: 20090401
  4. AMLODIPINE [Concomitant]
     Indication: PERIPHERAL ARTERIAL OCCLUSIVE DISEASE
  5. PLAVIX [Concomitant]
     Indication: THROMBOSIS PROPHYLAXIS
     Dosage: UNK
     Dates: start: 20050101
  6. LEVOXYL [Concomitant]
     Indication: THYROID HORMONE REPLACEMENT THERAPY
     Dosage: UNK
     Dates: start: 19940101
  7. DARVOCET-N 100 [Concomitant]
     Indication: PAIN
     Dosage: UNK
     Dates: start: 20050101
  8. TAMSULOSIN [Concomitant]
     Indication: URINARY RETENTION
     Dosage: UNK
     Dates: start: 20000101
  9. AMBIEN [Concomitant]
     Indication: INSOMNIA
     Dosage: UNK
     Dates: start: 20050101
  10. LIPITOR [Concomitant]
     Indication: BLOOD CHOLESTEROL INCREASED
     Dosage: UNK
     Dates: start: 20050101
  11. MORPHINE SULFATE [Concomitant]
     Indication: PAIN
     Dosage: UNK
     Dates: start: 20090201
  12. MORPHINE SULFATE [Concomitant]
     Indication: PAIN
     Dosage: UNK
     Dates: start: 20090701
  13. LUPRON [Concomitant]
     Indication: HORMONE REPLACEMENT THERAPY
     Dosage: UNK
     Dates: start: 20070801
  14. MIRALAX [Concomitant]
     Indication: CONSTIPATION
     Dosage: UNK

REACTIONS (1)
  - DEATH [None]
